FAERS Safety Report 13452105 (Version 2)
Quarter: 2017Q2

REPORT INFORMATION
  Report Type: Spontaneous
  Country: US (occurrence: US)
  Receive Date: 20170418
  Receipt Date: 20170621
  Transmission Date: 20170830
  Serious: Yes (Other)
  Sender: FDA-Public Use
  Company Number: US-ARALEZ PHARMACEUTICALS R+D INC.-ARA-TP-US-2017-376

PATIENT
  Sex: Male
  Weight: 158.9 kg

DRUGS (3)
  1. METOPROLOL SUCCINATE. [Suspect]
     Active Substance: METOPROLOL SUCCINATE
     Indication: HYPERTENSION
  2. DIGOXIN. [Concomitant]
     Active Substance: DIGOXIN
     Indication: HEART RATE
     Dosage: ONE HALF TABLET
     Route: 048
  3. METOPROLOL SUCCINATE. [Suspect]
     Active Substance: METOPROLOL SUCCINATE
     Indication: HEART RATE
     Route: 048

REACTIONS (1)
  - Diabetes mellitus [Not Recovered/Not Resolved]
